FAERS Safety Report 5089043-5 (Version None)
Quarter: 2006Q3

REPORT INFORMATION
  Report Type: 
  Country: None (occurrence: None)
  Receive Date: 20060822
  Receipt Date: 20060711
  Transmission Date: 20061208
  Serious: Yes (Hospitalization)
  Sender: FDA-Public Use
  Company Number: F03200600162

PATIENT
  Age: 47 Year
  Sex: Male

DRUGS (10)
  1. OXALIPLATIN [Suspect]
     Indication: COLORECTAL CANCER METASTATIC
     Dosage: 85 MG/M2 Q2W - INTRAVENOUS NOS
     Route: 042
     Dates: start: 20030608, end: 20060608
  2. OXALIPLATIN [Suspect]
     Indication: METASTASES TO LUNG
     Dosage: 85 MG/M2 Q2W - INTRAVENOUS NOS
     Route: 042
     Dates: start: 20030608, end: 20060608
  3. CETUXIMAB               - SOLUTION [Suspect]
     Indication: COLORECTAL CANCER METASTATIC
     Dosage: 250 MG/M2 1/WEEK - INTRAVENOUS NOS
     Route: 042
     Dates: start: 20060608, end: 20060608
  4. CETUXIMAB               - SOLUTION [Suspect]
     Indication: METASTASES TO LUNG
     Dosage: 250 MG/M2 1/WEEK - INTRAVENOUS NOS
     Route: 042
     Dates: start: 20060608, end: 20060608
  5. FLUOROURACIL [Suspect]
     Indication: COLORECTAL CANCER METASTATIC
     Dosage: 400 MG/M2 BOLUS FOLLOWED BY CONTINUOUS INFUSION OF 2400 MG/M2 OVER FORTY SIX HOURS EVERY TWO WEEKS,
     Route: 042
     Dates: start: 20060608, end: 20060608
  6. FLUOROURACIL [Suspect]
     Indication: METASTASES TO LUNG
     Dosage: 400 MG/M2 BOLUS FOLLOWED BY CONTINUOUS INFUSION OF 2400 MG/M2 OVER FORTY SIX HOURS EVERY TWO WEEKS,
     Route: 042
     Dates: start: 20060608, end: 20060608
  7. LEUCOVORIN CALCIUM [Suspect]
     Indication: COLORECTAL CANCER METASTATIC
     Dosage: 400 MG/M2 Q2W - INTRAVENOUS
     Route: 042
     Dates: start: 20060608, end: 20060608
  8. LEUCOVORIN CALCIUM [Suspect]
     Indication: METASTASES TO LUNG
     Dosage: 400 MG/M2 Q2W - INTRAVENOUS
     Route: 042
     Dates: start: 20060608, end: 20060608
  9. BEVACIZUMAB - SOLUTION [Suspect]
     Indication: COLORECTAL CANCER METASTATIC
     Dosage: 5 MG/KG Q2W - INTRAVENOUS NOS
     Route: 042
     Dates: start: 20060608, end: 20060608
  10. BEVACIZUMAB - SOLUTION [Suspect]
     Indication: METASTASES TO LUNG
     Dosage: 5 MG/KG Q2W - INTRAVENOUS NOS
     Route: 042
     Dates: start: 20060608, end: 20060608

REACTIONS (4)
  - DEHYDRATION [None]
  - DIARRHOEA [None]
  - DIZZINESS [None]
  - HYPOTENSION [None]
